FAERS Safety Report 15665038 (Version 1)
Quarter: 2018Q4

REPORT INFORMATION
  Report Type: Report from Study
  Country: IT (occurrence: IT)
  Receive Date: 20181128
  Receipt Date: 20181128
  Transmission Date: 20190205
  Serious: Yes (Hospitalization)
  Sender: FDA-Public Use
  Company Number: IT-SAKK-2018SA321292AA

PATIENT
  Age: 44 Year
  Sex: Female

DRUGS (11)
  1. DELTACORTENE [Concomitant]
     Active Substance: PREDNISONE
     Dosage: UNK
  2. LANSOX [Concomitant]
     Active Substance: LANSOPRAZOLE
     Dosage: UNK
  3. ZEFFIX [Concomitant]
     Active Substance: LAMIVUDINE
     Dosage: UNK
  4. AMOXICILLIN. [Concomitant]
     Active Substance: AMOXICILLIN
     Dosage: UNK
  5. EPIRUBICIN HYDROCHLORIDE. [Suspect]
     Active Substance: EPIRUBICIN HYDROCHLORIDE
     Dosage: UNK
     Route: 042
     Dates: start: 20180501
  6. MYCOSTATIN [Concomitant]
     Active Substance: NYSTATIN
  7. PLASIL [METOCLOPRAMIDE] [Concomitant]
     Dosage: UNK
  8. ZARZIO [Concomitant]
     Active Substance: FILGRASTIM
     Dosage: UNK
  9. DOCETAXEL. [Suspect]
     Active Substance: DOCETAXEL
     Dosage: UNK
     Dates: start: 20180501
  10. TACHIDOL [Concomitant]
     Active Substance: ACETAMINOPHEN\CODEINE PHOSPHATE
     Dosage: UNK
  11. ONDANSETRON HYDROCHLORIDE. [Concomitant]
     Active Substance: ONDANSETRON HYDROCHLORIDE
     Dosage: UNK

REACTIONS (1)
  - Pharyngotonsillitis [Recovering/Resolving]

NARRATIVE: CASE EVENT DATE: 20180905
